FAERS Safety Report 21440136 (Version 1)
Quarter: 2022Q4

REPORT INFORMATION
  Report Type: Spontaneous
  Country: GB (occurrence: None)
  Receive Date: 20221011
  Receipt Date: 20221011
  Transmission Date: 20230112
  Serious: Yes (Disabling, Other)
  Sender: FDA-Public Use
  Company Number: GB-MHRA-MED-202210031610308230-TDKCZ

PATIENT
  Age: 42 Year
  Sex: Female

DRUGS (2)
  1. CLADRIBINE [Suspect]
     Active Substance: CLADRIBINE
     Indication: Multiple sclerosis
     Dosage: FIRST YEAR COURSE
     Dates: start: 20190310
  2. CLADRIBINE [Suspect]
     Active Substance: CLADRIBINE
     Dosage: SECOND YEAR COURSE
     Dates: end: 20210721

REACTIONS (1)
  - Basedow^s disease [Recovering/Resolving]

NARRATIVE: CASE EVENT DATE: 20210608
